FAERS Safety Report 10218396 (Version 1)
Quarter: 2014Q2

REPORT INFORMATION
  Report Type: Report from Study
  Country: US (occurrence: US)
  Receive Date: 20140605
  Receipt Date: 20140605
  Transmission Date: 20141212
  Serious: Yes (Hospitalization)
  Sender: FDA-Public Use
  Company Number: US-JNJFOC-20140518322

PATIENT
  Age: 17 Year
  Sex: Female
  Weight: 59.47 kg

DRUGS (17)
  1. REMICADE [Suspect]
     Indication: CROHN^S DISEASE
     Route: 042
     Dates: start: 20130729
  2. PULMICORT [Concomitant]
     Route: 065
  3. CALCIUM [Concomitant]
     Route: 065
  4. VITAMIN D [Concomitant]
     Route: 065
  5. BENADRYL [Concomitant]
     Route: 065
  6. IRON [Concomitant]
     Route: 065
  7. ALLEGRA [Concomitant]
     Route: 065
  8. FOLIC ACID [Concomitant]
     Route: 065
  9. KYTRIL [Concomitant]
     Route: 065
  10. MUCINEX [Concomitant]
     Route: 065
  11. 5-ASA [Concomitant]
     Route: 048
  12. NAPROSYN [Concomitant]
     Route: 065
  13. PRILOSEC [Concomitant]
     Route: 065
  14. SENOKOT [Concomitant]
     Route: 065
  15. ZOLOFT [Concomitant]
     Route: 065
  16. AZATHIOPRINE [Concomitant]
     Route: 065
  17. METHOTREXATE [Concomitant]
     Route: 065

REACTIONS (1)
  - Clostridium difficile infection [Recovered/Resolved]
